FAERS Safety Report 21489438 (Version 1)
Quarter: 2022Q4

REPORT INFORMATION
  Report Type: Report from Study
  Country: CA (occurrence: CA)
  Receive Date: 20221021
  Receipt Date: 20221021
  Transmission Date: 20230113
  Serious: Yes (Other)
  Sender: FDA-Public Use
  Company Number: CA-BoehringerIngelheim-2021-BI-110894

PATIENT
  Age: 77 Year
  Sex: Male

DRUGS (2)
  1. OFEV [Suspect]
     Active Substance: NINTEDANIB
     Indication: Idiopathic pulmonary fibrosis
     Route: 048
     Dates: start: 20210621
  2. OFEV [Suspect]
     Active Substance: NINTEDANIB
     Indication: Interstitial lung disease

REACTIONS (21)
  - Idiopathic pulmonary fibrosis [Not Recovered/Not Resolved]
  - Diarrhoea [Not Recovered/Not Resolved]
  - Insomnia [Recovered/Resolved]
  - Cough [Recovered/Resolved]
  - Faeces discoloured [Not Recovered/Not Resolved]
  - Diarrhoea [Recovered/Resolved]
  - Skin atrophy [Not Recovered/Not Resolved]
  - Bladder neoplasm [Not Recovered/Not Resolved]
  - Faeces soft [Not Recovered/Not Resolved]
  - Dysphagia [Recovered/Resolved]
  - Cough [Recovered/Resolved]
  - Weight decreased [Recovered/Resolved]
  - Dyspnoea [Not Recovered/Not Resolved]
  - Oxygen saturation decreased [Recovered/Resolved]
  - Weight decreased [Not Recovered/Not Resolved]
  - Cough [Not Recovered/Not Resolved]
  - Headache [Not Recovered/Not Resolved]
  - Oropharyngeal pain [Not Recovered/Not Resolved]
  - Constipation [Recovered/Resolved]
  - Decreased appetite [Not Recovered/Not Resolved]
  - Abdominal pain upper [Not Recovered/Not Resolved]

NARRATIVE: CASE EVENT DATE: 20210101
